FAERS Safety Report 6908191-5 (Version None)
Quarter: 2010Q3

REPORT INFORMATION
  Report Type: 
  Country: None (occurrence: None)
  Receive Date: 20100708
  Receipt Date: 20100116
  Transmission Date: 20110219
  Serious: Yes (Other)
  Sender: FDA-Public Use
  Company Number: 2007099784

PATIENT
  Age: 56 Year
  Sex: Female
  Weight: 72.6 kg

DRUGS (10)
  1. CHANTIX [Suspect]
     Indication: SMOKING CESSATION THERAPY
     Dosage: 0.5 MG, 1X/DAY 1 MG, 2X/DAY 1 MG, 1X/DAY
     Dates: start: 20071001, end: 20071201
  2. CHANTIX [Suspect]
     Indication: SMOKING CESSATION THERAPY
     Dosage: 0.5 MG, 1X/DAY 1 MG, 2X/DAY 1 MG, 1X/DAY
     Dates: start: 20071001
  3. CHANTIX [Suspect]
     Indication: SMOKING CESSATION THERAPY
     Dosage: 0.5 MG, 1X/DAY 1 MG, 2X/DAY 1 MG, 1X/DAY
     Dates: start: 20100120
  4. INFLUENZA VACCINE (INFLUENZA VACCINE) [Suspect]
     Dates: start: 20071206, end: 20071206
  5. AVAPRO [Concomitant]
  6. LISINOPRIL [Concomitant]
  7. ASCORBIC ACID [Concomitant]
  8. MULTIVITAMINS (ASCORBIC ACID, ERGOCALCIFEROL, FOLIC ACID, NICOTINAMIDE [Concomitant]
  9. VITAMIN B12 [Concomitant]
  10. VITAMIN E [Concomitant]

REACTIONS (8)
  - CIRCUMSTANCE OR INFORMATION CAPABLE OF LEADING TO MEDICATION ERROR [None]
  - HOT FLUSH [None]
  - HYPERSENSITIVITY [None]
  - IRRITABILITY [None]
  - PRURITUS [None]
  - RASH [None]
  - SLEEP DISORDER [None]
  - URTICARIA [None]
